FAERS Safety Report 10589850 (Version 1)
Quarter: 2014Q4

REPORT INFORMATION
  Report Type: Spontaneous
  Country: US (occurrence: None)
  Receive Date: 20141117
  Receipt Date: 20141117
  Transmission Date: 20150529
  Serious: Yes (Hospitalization)
  Sender: FDA-Public Use
  Company Number: None

PATIENT
  Age: 74 Year
  Sex: Male
  Weight: 107.7 kg

DRUGS (1)
  1. WARFARIN [Suspect]
     Active Substance: WARFARIN
     Indication: ATRIAL FIBRILLATION
     Route: 048

REACTIONS (5)
  - Myelodysplastic syndrome [None]
  - Anaemia [None]
  - Dyspnoea exertional [None]
  - Gastric haemorrhage [None]
  - Haemorrhoidal haemorrhage [None]

NARRATIVE: CASE EVENT DATE: 20141103
